FAERS Safety Report 4801707-4 (Version None)
Quarter: 2005Q4

REPORT INFORMATION
  Report Type: 
  Country: None (occurrence: None)
  Receive Date: 20051013
  Receipt Date: 20051013
  Transmission Date: 20060501
  Serious: Yes (Life-Threatening)
  Sender: FDA-Public Use
  Company Number: None

PATIENT
  Age: 13 Year
  Sex: Female
  Weight: 65 kg

DRUGS (6)
  1. ETANERCEPT [Suspect]
     Indication: JUVENILE ARTHRITIS
     Dosage: 50 MG WEEKLY SQ
     Route: 058
     Dates: start: 20050701, end: 20050901
  2. ETANERCEPT [Suspect]
     Indication: JUVENILE ARTHRITIS
     Dosage: 50 MG WEEKLY SQ
     Route: 058
     Dates: start: 20021101
  3. REMICADE [Suspect]
     Dosage: 200 MG IV
     Route: 042
     Dates: start: 20021001, end: 20021101
  4. SYNTHROID [Concomitant]
  5. METHOTREXATE [Concomitant]
  6. MULTIPLE NSAIDS [Concomitant]

REACTIONS (2)
  - COLITIS [None]
  - HEPATIC FAILURE [None]
